FAERS Safety Report 4893494-9 (Version None)
Quarter: 2006Q1

REPORT INFORMATION
  Report Type: 
  Country: None (occurrence: None)
  Receive Date: 20060127
  Receipt Date: 20051102
  Transmission Date: 20060701
  Serious: No
  Sender: FDA-Public Use
  Company Number: US-BRISTOL-MYERS SQUIBB COMPANY-13164561

PATIENT
  Age: 36 Year
  Sex: Male
  Weight: 87 kg

DRUGS (16)
  1. KENALOG [Suspect]
     Indication: INTERVERTEBRAL DISC PROTRUSION
     Route: 024
  2. ADVAIR DISKUS 100/50 [Concomitant]
  3. ALBUTEROL [Concomitant]
  4. THEOPHYLLINE [Concomitant]
  5. SINGULAIR [Concomitant]
  6. SYNTHROID [Concomitant]
  7. NORVASC [Concomitant]
  8. FLEXERIL [Concomitant]
  9. ULTRAM [Concomitant]
  10. SOMA [Concomitant]
  11. OXYCODONE [Concomitant]
  12. LIPITOR [Concomitant]
  13. LUNESTA [Concomitant]
  14. LIDOCAINE [Concomitant]
  15. METHYLPREDNISOLONE [Concomitant]
  16. FLONASE [Concomitant]

REACTIONS (1)
  - MUSCLE SPASMS [None]
